FAERS Safety Report 23176182 (Version 1)
Quarter: 2023Q4

REPORT INFORMATION
  Report Type: Report from Study
  Country: FR (occurrence: FR)
  Receive Date: 20231113
  Receipt Date: 20231113
  Transmission Date: 20240110
  Serious: Yes (Hospitalization)
  Sender: FDA-Public Use
  Company Number: FR-AMGEN-FRACT2023197000

PATIENT
  Age: 31 Year
  Sex: Male
  Weight: 65 kg

DRUGS (8)
  1. BLINATUMOMAB [Suspect]
     Active Substance: BLINATUMOMAB
     Indication: B precursor type acute leukaemia
     Dosage: 28 MICROGRAM, QD/ LAST ADMINISTERED: 07/JUL/2021
     Route: 042
     Dates: start: 20210705
  2. ATRIANCE [Suspect]
     Active Substance: NELARABINE
     Indication: B precursor type acute leukaemia
     Route: 065
  3. TASIGNA [Suspect]
     Active Substance: NILOTINIB
     Indication: B precursor type acute leukaemia
     Route: 065
  4. VALACYCLOVIR HYDROCHLORIDE [Concomitant]
     Active Substance: VALACYCLOVIR HYDROCHLORIDE
     Indication: Infection prophylaxis
     Dosage: 500/DAY
     Route: 048
     Dates: start: 20210328
  5. BACTRIM [Concomitant]
     Active Substance: SULFAMETHOXAZOLE\TRIMETHOPRIM
     Indication: Antifungal prophylaxis
  6. OMEPRAZOLE [Concomitant]
     Active Substance: OMEPRAZOLE
     Indication: Prophylaxis against gastrointestinal ulcer
     Dosage: 1 DOSAGE FORM, QD
     Route: 048
     Dates: start: 20210328
  7. KEPPRA [Concomitant]
     Active Substance: LEVETIRACETAM
     Indication: Epilepsy
     Dosage: 2 DOSAGE FORM, QD
     Dates: start: 20210618
  8. ACETAMINOPHEN [Concomitant]
     Active Substance: ACETAMINOPHEN
     Indication: Pain
     Dosage: MAX 04 PER DAY
     Route: 048
     Dates: start: 20210618

REACTIONS (1)
  - Nervous system disorder [Recovering/Resolving]

NARRATIVE: CASE EVENT DATE: 20210707
